FAERS Safety Report 4268906-4 (Version None)
Quarter: 2004Q1

REPORT INFORMATION
  Report Type: 
  Country: None (occurrence: None)
  Receive Date: 20040112
  Receipt Date: 20040112
  Transmission Date: 20041129
  Serious: Yes (Disabling)
  Sender: FDA-Public Use
  Company Number: None

PATIENT
  Age: 55 Year
  Sex: Female
  Weight: 62.5964 kg

DRUGS (2)
  1. GENTAMICIN [Suspect]
     Dosage: 120 MG Q 8 HR INTRAVENOUS
     Route: 042
     Dates: start: 20030821, end: 20030831
  2. CEFTAZIDIME [Suspect]
     Dosage: 2G Q 8HR INTRAVENOUS
     Route: 042
     Dates: start: 20030821, end: 20030831

REACTIONS (1)
  - VESTIBULAR DISORDER [None]
